FAERS Safety Report 11158298 (Version 1)
Quarter: 2015Q2

REPORT INFORMATION
  Report Type: Spontaneous
  Country: US (occurrence: US)
  Receive Date: 20150603
  Receipt Date: 20150603
  Transmission Date: 20150821
  Serious: No
  Sender: FDA-Public Use
  Company Number: US-BIOGENIDEC-2015BI075089

PATIENT
  Age: 77 Year
  Sex: Female

DRUGS (11)
  1. CALCIUM+D [Concomitant]
  2. VALIUM [Concomitant]
     Active Substance: DIAZEPAM
  3. BACLOFEN. [Concomitant]
     Active Substance: BACLOFEN
  4. MULTI VITAMIN [Concomitant]
     Active Substance: VITAMINS
  5. DIAZEPAM. [Concomitant]
     Active Substance: DIAZEPAM
  6. HYDROCODONE BITARTRATE AND ACETAMINOPHEN [Concomitant]
     Active Substance: ACETAMINOPHEN\HYDROCODONE BITARTRATE
  7. MELOXICAM. [Concomitant]
     Active Substance: MELOXICAM
  8. VITAMIN D3 [Concomitant]
     Active Substance: CHOLECALCIFEROL
  9. TECFIDERA [Suspect]
     Active Substance: DIMETHYL FUMARATE
     Indication: MULTIPLE SCLEROSIS
     Route: 048
     Dates: start: 20150126
  10. CALCIUM [Concomitant]
     Active Substance: CALCIUM
  11. GABAPENTIN. [Concomitant]
     Active Substance: GABAPENTIN

REACTIONS (1)
  - Increased tendency to bruise [Unknown]

NARRATIVE: CASE EVENT DATE: 20150126
